FAERS Safety Report 8783485 (Version 1)
Quarter: 2012Q4

REPORT INFORMATION
  Report Type: Report from Study
  Country: US (occurrence: US)
  Receive Date: 20120913
  Receipt Date: 20120913
  Transmission Date: 20130627
  Serious: No
  Sender: FDA-Public Use
  Company Number: US-VERTEX PHARMACEUTICAL INC.-AE-2012-008549

PATIENT
  Age: 53 Year
  Sex: Male

DRUGS (3)
  1. INCIVEK [Suspect]
     Indication: HEPATITIS C
     Route: 048
     Dates: start: 20120316, end: 20120608
  2. RIBAVIRIN [Concomitant]
     Indication: HEPATITIS C
     Dates: start: 20120316
  3. PEGASYS [Concomitant]
     Indication: HEPATITIS C
     Dates: start: 20120316

REACTIONS (12)
  - Depression [Not Recovered/Not Resolved]
  - Negative thoughts [Unknown]
  - Disturbance in attention [Unknown]
  - Irritability [Unknown]
  - Verbal abuse [Unknown]
  - Fear [Unknown]
  - Hypersomnia [Unknown]
  - Impaired work ability [Unknown]
  - Confusional state [Unknown]
  - Malaise [Unknown]
  - Asthenia [Unknown]
  - Fatigue [Unknown]
